FAERS Safety Report 8905014 (Version 2)
Quarter: 2012Q4

REPORT INFORMATION
  Report Type: Report from Study
  Country: DE (occurrence: DE)
  Receive Date: 20121112
  Receipt Date: 20121206
  Transmission Date: 20130627
  Serious: Yes (Hospitalization, Other)
  Sender: FDA-Public Use
  Company Number: PHHY2012DE095359

PATIENT
  Age: 88 Year
  Sex: Male
  Weight: 82 kg

DRUGS (9)
  1. ICL670A [Suspect]
     Indication: MYELODYSPLASTIC SYNDROME
     Dosage: 500 mg, daily
     Route: 048
     Dates: start: 20111207
  2. CEFUROXIM [Concomitant]
     Dosage: UNK UKN, UNK
     Dates: start: 20120301, end: 20120302
  3. ALENDRON [Concomitant]
     Dosage: UNK UKN, UNK
     Dates: start: 20120308
  4. NEBIVOLON [Concomitant]
     Dosage: 10 mg, Daily, 1-0-1
     Dates: start: 20120306
  5. AMLIDOPIN [Concomitant]
     Dosage: 10 mg, day, 1-0-1
     Dates: start: 20120306
  6. EPROSARTAN [Concomitant]
     Dosage: 600 mg, daily, 1-0-0
     Dates: start: 20120306
  7. MAGNESIUM [Concomitant]
     Dosage: UNK UKN, UNK, 1-2-2
  8. CALVIT D [Concomitant]
     Dosage: UNK UKN, UNK, 1-0-1
  9. BIOPOIN [Concomitant]
     Indication: ANAEMIA
     Dosage: 30000 DF, UNK
     Route: 058
     Dates: start: 20110531

REACTIONS (5)
  - Pancytopenia [Recovered/Resolved]
  - Urinary tract infection [Recovered/Resolved]
  - Urethral intrinsic sphincter deficiency [Recovered/Resolved]
  - Urinary retention [Recovered/Resolved]
  - Chest pain [Recovered/Resolved]
